FAERS Safety Report 6905802-5 (Version None)
Quarter: 2010Q3

REPORT INFORMATION
  Report Type: 
  Country: None (occurrence: None)
  Receive Date: 20100804
  Receipt Date: 20100730
  Transmission Date: 20110219
  Serious: Yes (Death, Hospitalization)
  Sender: FDA-Public Use
  Company Number: CN-ROCHE-683912

PATIENT
  Sex: Female
  Weight: 68 kg

DRUGS (10)
  1. TOCILIZUMAB [Suspect]
     Indication: RHEUMATOID ARTHRITIS
     Dosage: DOSES BLINDED.
     Route: 042
     Dates: start: 20061110
  2. TOCILIZUMAB [Suspect]
     Route: 042
     Dates: start: 20091104
  3. TOCILIZUMAB [Suspect]
     Route: 042
     Dates: start: 20091202
  4. TOCILIZUMAB [Suspect]
     Route: 042
     Dates: start: 20091230
  5. TOCILIZUMAB [Suspect]
     Route: 042
     Dates: start: 20100127, end: 20100127
  6. ACETYLSALICYLIC ACID SRT [Concomitant]
     Dates: start: 20040101
  7. METHOTREXATE [Concomitant]
     Route: 048
  8. PREDNISONE [Concomitant]
     Route: 048
  9. ASPIRIN [Concomitant]
     Route: 048
  10. INDOMETHACIN [Concomitant]
     Route: 048

REACTIONS (1)
  - DEMYELINATION [None]
